FAERS Safety Report 4444971-6 (Version None)
Quarter: 2004Q3

REPORT INFORMATION
  Report Type: 
  Country: None (occurrence: None)
  Receive Date: 20040903
  Receipt Date: 20040827
  Transmission Date: 20050211
  Serious: Yes (Hospitalization)
  Sender: FDA-Public Use
  Company Number: 2004PK01441

PATIENT
  Age: 66 Year
  Sex: Female
  Weight: 53 kg

DRUGS (23)
  1. NEXIUM [Suspect]
     Dosage: 20 MG DAILY PO
     Route: 048
     Dates: start: 20040415, end: 20040608
  2. VANCOMYCIN [Suspect]
     Indication: PNEUMONIA
     Dosage: 1 G DAILY IV
     Route: 042
     Dates: start: 20040526, end: 20040608
  3. RIFAMPICIN [Suspect]
     Indication: PNEUMONIA
     Dosage: 600 MG DAILY
     Dates: start: 20040526, end: 20040608
  4. NEUROCIL [Suspect]
     Dosage: 8 GTT DAILY
     Dates: start: 20040414, end: 20040608
  5. HYDROCORTISON [Concomitant]
  6. KALINOR-BRAUSETABLETTEN [Concomitant]
  7. TURIXIN [Concomitant]
  8. FRAGMIN P [Concomitant]
  9. SUFENTA [Concomitant]
  10. DORMICUM [Concomitant]
  11. HEPARIN [Concomitant]
  12. INSULIN [Concomitant]
  13. AVELOX [Concomitant]
  14. GERNEBCIN [Concomitant]
  15. NORVASC [Concomitant]
  16. XANEF [Concomitant]
  17. BELOC ZOK [Concomitant]
  18. DELIX [Concomitant]
  19. ERBANTIL [Concomitant]
  20. CYNT [Concomitant]
  21. MINIRIN [Concomitant]
  22. DILATREND [Concomitant]
  23. VALORON [Concomitant]

REACTIONS (1)
  - AGRANULOCYTOSIS [None]
